FAERS Safety Report 6746453-5 (Version None)
Quarter: 2010Q2

REPORT INFORMATION
  Report Type: 
  Country: None (occurrence: None)
  Receive Date: 20100528
  Receipt Date: 20091229
  Transmission Date: 20101027
  Serious: No
  Sender: FDA-Public Use
  Company Number: US-ASTRAZENECA-2010SE00418

PATIENT
  Sex: Male

DRUGS (4)
  1. PRILOSEC OTC [Suspect]
     Indication: GASTROOESOPHAGEAL REFLUX DISEASE
     Route: 048
     Dates: start: 20091029, end: 20091201
  2. ZOCOR [Concomitant]
     Dosage: UNKNOWN
  3. BLOOD PRESSURE MEDS [Concomitant]
     Dosage: UNKNOWN
  4. DIURETICS [Concomitant]
     Dosage: UNKNOWN

REACTIONS (1)
  - CARDIOVASCULAR DISORDER [None]
